FAERS Safety Report 19307326 (Version 1)
Quarter: 2021Q2

REPORT INFORMATION
  Report Type: Spontaneous
  Country: US (occurrence: US)
  Receive Date: 20210526
  Receipt Date: 20210526
  Transmission Date: 20210717
  Serious: Yes (Other)
  Sender: FDA-Public Use
  Company Number: US-GLAXOSMITHKLINE-USCH2021GSK030794

PATIENT
  Age: 15 Year
  Sex: Female
  Weight: 68.3 kg

DRUGS (2)
  1. IBUPROFEN. [Suspect]
     Active Substance: IBUPROFEN
     Indication: ABDOMINAL PAIN LOWER
  2. IBUPROFEN. [Suspect]
     Active Substance: IBUPROFEN
     Indication: DYSMENORRHOEA
     Dosage: 1,600?2,400 MG/DAY (HIGH DOSES)

REACTIONS (10)
  - Hyponatraemia [Recovered/Resolved]
  - Proteinuria [Recovered/Resolved]
  - Peripheral swelling [Recovered/Resolved]
  - Fatigue [Recovered/Resolved]
  - Hypoalbuminaemia [Recovered/Resolved]
  - Glomerulonephritis membranous [Recovered/Resolved]
  - Nephrotic syndrome [Recovered/Resolved]
  - Oedema peripheral [Recovered/Resolved]
  - Weight increased [Recovered/Resolved]
  - Hyperlipidaemia [Recovered/Resolved]
